FAERS Safety Report 4776564-5 (Version None)
Quarter: 2005Q3

REPORT INFORMATION
  Report Type: 
  Country: None (occurrence: None)
  Receive Date: 20050915
  Receipt Date: 20050902
  Transmission Date: 20060218
  Serious: Yes (Other)
  Sender: FDA-Public Use
  Company Number: 2005124296

PATIENT
  Age: 68 Year
  Sex: Male

DRUGS (1)
  1. ESTRAMUSTINE PHOSPHATE SODIUM CAPSULE [Suspect]
     Indication: PROSTATE CANCER
     Dosage: (140 MG), ORAL
     Route: 048
     Dates: start: 20050715, end: 20050725

REACTIONS (1)
  - SWELLING FACE [None]
